FAERS Safety Report 11782324 (Version 1)
Quarter: 2015Q4

REPORT INFORMATION
  Report Type: Spontaneous
  Country: IT (occurrence: IT)
  Receive Date: 20151127
  Receipt Date: 20151127
  Transmission Date: 20160305
  Serious: Yes (Death, Hospitalization, Other)
  Sender: FDA-Public Use
  Company Number: IT-BRISTOL-MYERS SQUIBB COMPANY-BMS-2015-079417

PATIENT
  Age: 75 Year
  Sex: Female

DRUGS (1)
  1. YERVOY [Suspect]
     Active Substance: IPILIMUMAB
     Indication: INTRAOCULAR MELANOMA
     Dosage: 235 MG, QCYCLE
     Route: 042
     Dates: start: 20150827, end: 20151009

REACTIONS (8)
  - Oedema [Fatal]
  - Fatigue [Unknown]
  - Decreased appetite [Unknown]
  - Rales [Unknown]
  - Joint swelling [Unknown]
  - Nausea [Fatal]
  - Vomiting [Unknown]
  - Tachycardia [Unknown]

NARRATIVE: CASE EVENT DATE: 20151029
